FAERS Safety Report 5508676-2 (Version None)
Quarter: 2007Q4

REPORT INFORMATION
  Report Type: 
  Country: None (occurrence: None)
  Receive Date: 20071107
  Receipt Date: 20071030
  Transmission Date: 20080405
  Serious: Yes (Death)
  Sender: FDA-Public Use
  Company Number: BR-AVENTIS-200715136EU

PATIENT
  Sex: Female

DRUGS (1)
  1. LASIX [Suspect]
     Dosage: DOSE: UNK
     Route: 048

REACTIONS (1)
  - DEATH [None]
